FAERS Safety Report 19794847 (Version 2)
Quarter: 2021Q3

REPORT INFORMATION
  Report Type: Report from Study
  Country: US (occurrence: US)
  Receive Date: 20210906
  Receipt Date: 20210925
  Transmission Date: 20211014
  Serious: Yes (Other)
  Sender: FDA-Public Use
  Company Number: NVSC2021US197139

PATIENT
  Sex: Male

DRUGS (1)
  1. ENTRESTO [Suspect]
     Active Substance: SACUBITRIL\VALSARTAN
     Indication: PRODUCT USED FOR UNKNOWN INDICATION
     Dosage: UNK UNK, BID (MG)
     Route: 048

REACTIONS (6)
  - Small cell lung cancer [Unknown]
  - Cardiac failure congestive [Unknown]
  - Hepatic cancer [Not Recovered/Not Resolved]
  - Stress [Unknown]
  - Ageusia [Unknown]
  - Weight decreased [Not Recovered/Not Resolved]
